FAERS Safety Report 14506952 (Version 1)
Quarter: 2018Q1

REPORT INFORMATION
  Report Type: Spontaneous
  Country: US (occurrence: US)
  Receive Date: 20180208
  Receipt Date: 20180208
  Transmission Date: 20180509
  Serious: No
  Sender: FDA-Public Use
  Company Number: US-TEVA-2018-US-855085

PATIENT
  Age: 27 Year
  Sex: Female
  Weight: 54 kg

DRUGS (2)
  1. RAMIPRIL. [Concomitant]
     Active Substance: RAMIPRIL
     Indication: PERIPARTUM CARDIOMYOPATHY
  2. PARAGARD T 380A [Suspect]
     Active Substance: COPPER
     Indication: CONTRACEPTION
     Route: 065
     Dates: start: 20171211, end: 20180124

REACTIONS (4)
  - Device expulsion [Recovered/Resolved]
  - Muscle spasms [Unknown]
  - Menstruation irregular [Unknown]
  - Menorrhagia [Unknown]

NARRATIVE: CASE EVENT DATE: 20180124
